FAERS Safety Report 19687161 (Version 1)
Quarter: 2021Q3

REPORT INFORMATION
  Report Type: Spontaneous
  Country: CN (occurrence: CN)
  Receive Date: 20210811
  Receipt Date: 20210811
  Transmission Date: 20211014
  Serious: Yes (Hospitalization, Other)
  Sender: FDA-Public Use
  Company Number: CN-PFIZER INC-202100993794

PATIENT
  Age: 19 Year
  Sex: Male
  Weight: 68 kg

DRUGS (30)
  1. CYTARABINE. [Suspect]
     Active Substance: CYTARABINE
     Indication: ACUTE LYMPHOCYTIC LEUKAEMIA
     Dosage: 3.8 G, 2X/DAY
     Route: 041
     Dates: start: 20210706, end: 20210706
  2. SODIUM CHLORIDE. [Concomitant]
     Active Substance: SODIUM CHLORIDE
     Indication: ACUTE LYMPHOCYTIC LEUKAEMIA
     Dosage: 100 ML, 1X/DAY
     Route: 041
     Dates: start: 20210702, end: 20210702
  3. METHOTREXATE. [Suspect]
     Active Substance: METHOTREXATE
     Indication: CHEMOTHERAPY
     Dosage: 4.5 G, 1X/DAY
     Route: 041
     Dates: start: 20210702, end: 20210702
  4. METHOTREXATE. [Suspect]
     Active Substance: METHOTREXATE
     Indication: MYELOSUPPRESSION
  5. PEGASPARGASE [Suspect]
     Active Substance: PEGASPARGASE
     Indication: UPPER RESPIRATORY TRACT INFECTION
  6. SODIUM CHLORIDE. [Concomitant]
     Active Substance: SODIUM CHLORIDE
     Indication: CHEMOTHERAPY
  7. SODIUM CHLORIDE. [Concomitant]
     Active Substance: SODIUM CHLORIDE
     Indication: ACUTE LYMPHOCYTIC LEUKAEMIA
     Dosage: 500 ML, 1X/DAY
     Route: 041
     Dates: start: 20210702, end: 20210702
  8. METHOTREXATE. [Suspect]
     Active Substance: METHOTREXATE
     Indication: HEPATIC FUNCTION ABNORMAL
  9. CYCLOPHOSPHAMIDE. [Suspect]
     Active Substance: CYCLOPHOSPHAMIDE
     Indication: HEPATIC FUNCTION ABNORMAL
  10. PEGASPARGASE [Suspect]
     Active Substance: PEGASPARGASE
     Indication: ACUTE LYMPHOCYTIC LEUKAEMIA
     Dosage: 3750 IU, 1X/DAY
     Route: 030
     Dates: start: 20210707, end: 20210707
  11. SODIUM CHLORIDE. [Concomitant]
     Active Substance: SODIUM CHLORIDE
     Indication: CHEMOTHERAPY
     Dosage: 500 ML, 2X/DAY
     Route: 041
     Dates: start: 20210703, end: 20210705
  12. SODIUM CHLORIDE. [Concomitant]
     Active Substance: SODIUM CHLORIDE
     Indication: UPPER RESPIRATORY TRACT INFECTION
  13. SODIUM CHLORIDE. [Concomitant]
     Active Substance: SODIUM CHLORIDE
     Indication: HEPATIC FUNCTION ABNORMAL
  14. CYTARABINE. [Suspect]
     Active Substance: CYTARABINE
     Indication: UPPER RESPIRATORY TRACT INFECTION
  15. METHOTREXATE. [Suspect]
     Active Substance: METHOTREXATE
     Indication: ACUTE LYMPHOCYTIC LEUKAEMIA
     Dosage: 0.5 G, 1X/DAY
     Route: 041
     Dates: start: 20210702, end: 20210702
  16. METHOTREXATE. [Suspect]
     Active Substance: METHOTREXATE
     Indication: UPPER RESPIRATORY TRACT INFECTION
  17. CYCLOPHOSPHAMIDE. [Suspect]
     Active Substance: CYCLOPHOSPHAMIDE
     Indication: ACUTE LYMPHOCYTIC LEUKAEMIA
     Dosage: 3.8 G, 2X/DAY
     Route: 041
     Dates: start: 20210706, end: 20210706
  18. CYCLOPHOSPHAMIDE. [Suspect]
     Active Substance: CYCLOPHOSPHAMIDE
     Indication: CHEMOTHERAPY
  19. CYCLOPHOSPHAMIDE. [Suspect]
     Active Substance: CYCLOPHOSPHAMIDE
     Indication: UPPER RESPIRATORY TRACT INFECTION
  20. SODIUM CHLORIDE. [Concomitant]
     Active Substance: SODIUM CHLORIDE
     Indication: MYELOSUPPRESSION
  21. CYCLOPHOSPHAMIDE. [Suspect]
     Active Substance: CYCLOPHOSPHAMIDE
     Indication: MYELOSUPPRESSION
  22. PEGASPARGASE [Suspect]
     Active Substance: PEGASPARGASE
     Indication: MYELOSUPPRESSION
  23. PEGASPARGASE [Suspect]
     Active Substance: PEGASPARGASE
     Indication: CHEMOTHERAPY
  24. PEGASPARGASE [Suspect]
     Active Substance: PEGASPARGASE
     Indication: HEPATIC FUNCTION ABNORMAL
  25. SODIUM CHLORIDE. [Concomitant]
     Active Substance: SODIUM CHLORIDE
     Indication: UPPER RESPIRATORY TRACT INFECTION
  26. CYTARABINE. [Suspect]
     Active Substance: CYTARABINE
     Indication: CHEMOTHERAPY
  27. CYTARABINE. [Suspect]
     Active Substance: CYTARABINE
     Indication: MYELOSUPPRESSION
  28. CYTARABINE. [Suspect]
     Active Substance: CYTARABINE
     Indication: HEPATIC FUNCTION ABNORMAL
  29. SODIUM CHLORIDE. [Concomitant]
     Active Substance: SODIUM CHLORIDE
     Indication: HEPATIC FUNCTION ABNORMAL
  30. SODIUM CHLORIDE. [Concomitant]
     Active Substance: SODIUM CHLORIDE
     Indication: MYELOSUPPRESSION
     Dosage: 500 ML, 2X/DAY
     Route: 041
     Dates: start: 20210706, end: 20210706

REACTIONS (2)
  - Myelosuppression [Recovering/Resolving]
  - Full blood count decreased [Recovering/Resolving]

NARRATIVE: CASE EVENT DATE: 20210712
